FAERS Safety Report 9174487 (Version 1)
Quarter: 2013Q1

REPORT INFORMATION
  Report Type: Spontaneous
  Country: SE (occurrence: SE)
  Receive Date: 20130320
  Receipt Date: 20130320
  Transmission Date: 20140127
  Serious: Yes (Other)
  Sender: FDA-Public Use
  Company Number: SE-009507513-1303SWE008228

PATIENT
  Age: 74 Year
  Sex: Female

DRUGS (4)
  1. FARESTON [Suspect]
     Indication: OSTEOPOROSIS
     Dosage: UNK
     Route: 065
     Dates: start: 2012, end: 2012
  2. TAMOXIFEN CITRATE [Suspect]
     Dosage: UNK
     Route: 065
     Dates: start: 2012, end: 2012
  3. LETROZOLE [Suspect]
     Dosage: UNK
     Route: 065
     Dates: start: 2012, end: 2012
  4. IPREN [Suspect]
     Dosage: UNK
     Route: 065
     Dates: start: 2012, end: 20130103

REACTIONS (3)
  - Angioedema [Unknown]
  - Lip swelling [Unknown]
  - Off label use [Unknown]
